FAERS Safety Report 25618936 (Version 1)
Quarter: 2025Q3

REPORT INFORMATION
  Report Type: Spontaneous
  Country: US (occurrence: None)
  Receive Date: 20250729
  Receipt Date: 20250729
  Transmission Date: 20251021
  Serious: Yes (Death, Hospitalization)
  Sender: FDA-CTU
  Company Number: None

PATIENT
  Age: 37 Year
  Sex: Female

DRUGS (2)
  1. PEMBROLIZUMAB [Suspect]
     Active Substance: PEMBROLIZUMAB
     Indication: Breast cancer metastatic
     Route: 042
     Dates: start: 20241105, end: 20250225
  2. INFLIXIMAB-AXXQ [Suspect]
     Active Substance: INFLIXIMAB-AXXQ
     Indication: Colitis
     Route: 042
     Dates: start: 20250624, end: 20250624

REACTIONS (8)
  - Asthenia [None]
  - Colitis [None]
  - Pneumonitis [None]
  - Disseminated intravascular coagulation [None]
  - Pneumocystis jirovecii pneumonia [None]
  - Immunodeficiency [None]
  - Inflammatory bowel disease [None]
  - Multiple organ dysfunction syndrome [None]

NARRATIVE: CASE EVENT DATE: 20250626
